FAERS Safety Report 12209086 (Version 4)
Quarter: 2017Q1

REPORT INFORMATION
  Report Type: Report from Study
  Country: JP (occurrence: JP)
  Receive Date: 20160324
  Receipt Date: 20170131
  Transmission Date: 20170428
  Serious: Yes (Hospitalization)
  Sender: FDA-Public Use
  Company Number: JP-PFIZER INC-2016170228

PATIENT
  Age: 51 Year
  Sex: Female
  Weight: 39.8 kg

DRUGS (7)
  1. FOLIAMIN [Concomitant]
     Active Substance: FOLIC ACID
     Route: 048
  2. NEXIUM [Concomitant]
     Active Substance: ESOMEPRAZOLE MAGNESIUM
     Route: 048
  3. HYPEN /00340101/ [Concomitant]
     Route: 048
  4. RECALBON [Concomitant]
     Active Substance: MINODRONIC ACID
     Route: 048
  5. RHEUMATREX [Concomitant]
     Active Substance: METHOTREXATE SODIUM
     Dosage: 8 MG, WEEKLY
     Dates: end: 20150930
  6. XELJANZ [Suspect]
     Active Substance: TOFACITINIB CITRATE
     Indication: RHEUMATOID ARTHRITIS
     Dosage: 5 MG, 2X/DAY
     Route: 048
     Dates: start: 20150813, end: 20150930
  7. RHEUMATREX [Concomitant]
     Active Substance: METHOTREXATE SODIUM
     Dosage: 8 MG, WEEKLY
     Dates: start: 20151002

REACTIONS (1)
  - Haemarthrosis [Recovering/Resolving]

NARRATIVE: CASE EVENT DATE: 201508
